FAERS Safety Report 9300137 (Version 1)
Quarter: 2013Q1

REPORT INFORMATION
  Report Type: Spontaneous
  Country: US (occurrence: None)
  Receive Date: 20121231
  Receipt Date: 20121231
  Transmission Date: 20140127
  Serious: Yes (Other)
  Sender: FDA-Public Use
  Company Number: RB-44285-2012

PATIENT
  Age: 55 Year
  Sex: Male

DRUGS (2)
  1. SUBOXONE [Suspect]
     Indication: PAIN MANAGEMENT
     Dosage: SUBOXONE FILM; VARIOUS DOSE SUBLINGUAL)
     Route: 060
     Dates: start: 201208
  2. SUBOXONE [Suspect]
     Indication: PRODUCT USED FOR UNKNOWN INDICATION
     Dosage: DOSE DETAILS NOT PROVIDED UNKNOWN)

REACTIONS (3)
  - Off label use [None]
  - Wrong technique in drug usage process [None]
  - Substance abuse [None]
